FAERS Safety Report 6930978-3 (Version None)
Quarter: 2010Q3

REPORT INFORMATION
  Report Type: 
  Country: None (occurrence: None)
  Receive Date: 20100818
  Receipt Date: 20100813
  Transmission Date: 20110219
  Serious: Yes (Death, Hospitalization)
  Sender: FDA-Public Use
  Company Number: GB-PFIZER INC-2010085704

PATIENT
  Age: 67 Year
  Sex: Male
  Weight: 87 kg

DRUGS (3)
  1. CELECOXIB [Suspect]
     Indication: PROSTATE CANCER
     Dosage: 400 MG, 2X/DAY
     Route: 048
     Dates: start: 20100408
  2. MST [Concomitant]
     Dosage: 60 MG, 1X/DAY
     Route: 048
     Dates: start: 20100511, end: 20100515
  3. TAMSULOSIN [Concomitant]
     Dosage: 400 MG, 1X/DAY
     Route: 048
     Dates: start: 20080623

REACTIONS (1)
  - LOWER RESPIRATORY TRACT INFECTION [None]
